FAERS Safety Report 5590752-X (Version None)
Quarter: 2008Q1

REPORT INFORMATION
  Report Type: 
  Country: None (occurrence: None)
  Receive Date: 20080114
  Receipt Date: 20080104
  Transmission Date: 20080703
  Serious: Yes (Life-Threatening, Hospitalization, Other)
  Sender: FDA-Public Use
  Company Number: US-PFIZER INC-2008001634

PATIENT
  Sex: Female
  Weight: 75 kg

DRUGS (8)
  1. CELEBREX [Suspect]
     Indication: ARTHRITIS
     Route: 048
     Dates: start: 20071108, end: 20071121
  2. LITHIUM CARBONATE [Interacting]
     Indication: CONVULSION
     Route: 048
  3. PERCOCET [Concomitant]
  4. TEGRETOL [Concomitant]
     Indication: CONVULSION
  5. LEVOXYL [Concomitant]
  6. INDERAL [Concomitant]
  7. KLONOPIN [Concomitant]
  8. RESTORIL [Concomitant]

REACTIONS (2)
  - DRUG INTERACTION [None]
  - THERAPEUTIC AGENT TOXICITY [None]
